FAERS Safety Report 15340223 (Version 1)
Quarter: 2018Q3

REPORT INFORMATION
  Report Type: Spontaneous
  Country: KW (occurrence: KW)
  Receive Date: 20180831
  Receipt Date: 20180831
  Transmission Date: 20181010
  Serious: Yes (Other)
  Sender: FDA-Public Use
  Company Number: KW-ASTRAZENECA-2018SE92361

PATIENT
  Age: 38 Year
  Sex: Female

DRUGS (3)
  1. GLUCOPHAGE XR [Concomitant]
     Active Substance: METFORMIN HYDROCHLORIDE
     Route: 048
  2. BYDUREON [Suspect]
     Active Substance: EXENATIDE
     Indication: TYPE 2 DIABETES MELLITUS
     Dosage: 2.0MG UNKNOWN
     Route: 058
     Dates: start: 20180323, end: 20180709
  3. FORXIGA [Concomitant]
     Active Substance: DAPAGLIFLOZIN
     Route: 048

REACTIONS (2)
  - Exposure during pregnancy [Unknown]
  - Ectopic pregnancy [Unknown]
